FAERS Safety Report 21580518 (Version 1)
Quarter: 2022Q4

REPORT INFORMATION
  Report Type: Spontaneous
  Country: US (occurrence: US)
  Receive Date: 20221110
  Receipt Date: 20221110
  Transmission Date: 20230113
  Serious: No
  Sender: FDA-Public Use
  Company Number: US-SA-SAC20220902001214

PATIENT
  Age: 24 Year
  Sex: Female
  Weight: 99.79 kg

DRUGS (1)
  1. CEREZYME [Suspect]
     Active Substance: IMIGLUCERASE
     Indication: Gaucher^s disease
     Dosage: 6400 U, QOW
     Route: 042
     Dates: start: 20220118

REACTIONS (1)
  - Weight decreased [Unknown]
